FAERS Safety Report 24678442 (Version 3)
Quarter: 2025Q1

REPORT INFORMATION
  Report Type: Report from Study
  Country: CH (occurrence: CH)
  Receive Date: 20241129
  Receipt Date: 20250221
  Transmission Date: 20250408
  Serious: No
  Sender: ALNYLAM PHARMACEUTICALS
  Company Number: CH-ALNYLAM PHARMACEUTICALS, INC.-ALN-2024-006593

PATIENT

DRUGS (10)
  1. OXLUMO [Suspect]
     Active Substance: LUMASIRAN
     Indication: Primary hyperoxaluria
     Route: 065
     Dates: start: 20201124, end: 20201124
  2. OXLUMO [Suspect]
     Active Substance: LUMASIRAN
     Route: 065
     Dates: start: 20230801, end: 20230801
  3. TORSEMIDE [Concomitant]
     Active Substance: TORSEMIDE
     Indication: Renal failure
     Dosage: 100 MILLIGRAM, BID
     Route: 048
     Dates: start: 20160401, end: 20231231
  4. RAMIPRIL [Concomitant]
     Active Substance: RAMIPRIL
     Indication: Hypertension
     Dosage: 10 MILLIGRAM, QD
     Route: 048
     Dates: start: 20160401, end: 20231231
  5. METOLAZONE [Concomitant]
     Active Substance: METOLAZONE
     Indication: Renal failure
     Dosage: 5 MILLIGRAM, QD
     Route: 048
     Dates: start: 20160401, end: 20231231
  6. METOLAZONE [Concomitant]
     Active Substance: METOLAZONE
     Indication: Oedema
  7. GABAPENTIN [Concomitant]
     Active Substance: GABAPENTIN
     Indication: Neuralgia
     Dosage: 300 MILLIGRAM, QD
     Route: 048
     Dates: start: 20210801, end: 20231231
  8. SEVELAMER [Concomitant]
     Active Substance: SEVELAMER
     Indication: Renal failure
     Dosage: 1600 MILLIGRAM, TID
     Route: 048
     Dates: start: 20170101, end: 20231231
  9. PROGRAF [Concomitant]
     Active Substance: TACROLIMUS
     Indication: Prophylaxis against transplant rejection
     Dosage: 10 MILLIGRAM, BID
     Route: 048
     Dates: start: 20230801
  10. PROGRAF [Concomitant]
     Active Substance: TACROLIMUS
     Indication: Prophylaxis against transplant rejection

REACTIONS (1)
  - No adverse event [Unknown]

NARRATIVE: CASE EVENT DATE: 20231231
